FAERS Safety Report 15538515 (Version 1)
Quarter: 2018Q4

REPORT INFORMATION
  Report Type: Spontaneous
  Country: IT (occurrence: US)
  Receive Date: 20181022
  Receipt Date: 20181022
  Transmission Date: 20190205
  Serious: Yes (Death)
  Sender: FDA-Public Use
  Company Number: IT-MYLANLABS-2018M1078520

PATIENT
  Age: 75 Year
  Sex: Female

DRUGS (2)
  1. INFLUENZA VACCINE TETRA [Suspect]
     Active Substance: INFLUENZA VIRUS VACCINE QUADRIVALENT TYPE A+B
     Indication: INFLUENZA IMMUNISATION
  2. WARFARIN [Suspect]
     Active Substance: WARFARIN
     Indication: PRODUCT USED FOR UNKNOWN INDICATION
     Dosage: UNK (REGIMEN 1)

REACTIONS (4)
  - Drug interaction [Fatal]
  - Death [Fatal]
  - Coagulopathy [Fatal]
  - International normalised ratio increased [Fatal]
